FAERS Safety Report 9325569 (Version 1)
Quarter: 2013Q2

REPORT INFORMATION
  Report Type: Spontaneous
  Country: US (occurrence: None)
  Receive Date: 20130531
  Receipt Date: 20130531
  Transmission Date: 20140414
  Serious: Yes (Life-Threatening, Hospitalization)
  Sender: FDA-Public Use
  Company Number: None

PATIENT
  Age: 54 Year
  Sex: Male
  Weight: 116.5 kg

DRUGS (1)
  1. VANCOMYCIN [Suspect]
     Dosage: 1.75 GM TID IV
     Route: 042
     Dates: start: 20130526, end: 20130528

REACTIONS (3)
  - Blood urea increased [None]
  - Blood creatinine increased [None]
  - Renal failure acute [None]
